FAERS Safety Report 6167862-1 (Version None)
Quarter: 2009Q2

REPORT INFORMATION
  Report Type: 
  Country: None (occurrence: None)
  Receive Date: 20090427
  Receipt Date: 20090420
  Transmission Date: 20091009
  Serious: Yes (Disabling)
  Sender: FDA-Public Use
  Company Number: GB-ALLERGAN-0905502US

PATIENT
  Sex: Female

DRUGS (2)
  1. DYSPORT [Suspect]
     Indication: HYPERTONIC BLADDER
     Dosage: 750 UNITS, SINGLE
     Route: 043
     Dates: start: 20050101, end: 20050101
  2. BOTULINUM TOXIN [Suspect]
     Indication: HYPERTONIC BLADDER
     Dosage: 5000 UNITS, UNK
     Dates: start: 20040101, end: 20040101

REACTIONS (1)
  - PARAPLEGIA [None]
